FAERS Safety Report 19444520 (Version 1)
Quarter: 2021Q2

REPORT INFORMATION
  Report Type: Spontaneous
  Country: US (occurrence: US)
  Receive Date: 20210621
  Receipt Date: 20210621
  Transmission Date: 20210717
  Serious: Yes (Other)
  Sender: FDA-Public Use
  Company Number: US-SA-2021SA201698

PATIENT
  Age: 56 Year
  Sex: Female

DRUGS (1)
  1. ZANTAC [Suspect]
     Active Substance: RANITIDINE HYDROCHLORIDE
     Dosage: QD
     Dates: start: 198909, end: 201505

REACTIONS (3)
  - Colorectal cancer [Unknown]
  - Breast cancer stage III [Unknown]
  - Gastric cancer [Unknown]

NARRATIVE: CASE EVENT DATE: 20040120
